FAERS Safety Report 5838681-8 (Version None)
Quarter: 2008Q3

REPORT INFORMATION
  Report Type: 
  Country: None (occurrence: None)
  Receive Date: 20080808
  Receipt Date: 20080731
  Transmission Date: 20090109
  Serious: Yes (Hospitalization)
  Sender: FDA-Public Use
  Company Number: A0732457A

PATIENT
  Age: 12 Year
  Sex: Female

DRUGS (4)
  1. LAMICTAL [Suspect]
     Dosage: 200MG TWICE PER DAY
     Route: 048
     Dates: start: 20050101
  2. LYRICA [Suspect]
     Dosage: 50MG TWICE PER DAY
     Route: 048
     Dates: start: 20060901, end: 20070101
  3. TOPAMAX [Suspect]
     Dosage: 25MG TWICE PER DAY
     Route: 048
     Dates: start: 20060101
  4. NO CONCURRENT MEDICATION [Concomitant]

REACTIONS (14)
  - ABNORMAL BEHAVIOUR [None]
  - AGGRESSION [None]
  - CONTUSION [None]
  - CONVULSION [None]
  - DISTURBANCE IN ATTENTION [None]
  - FALL [None]
  - HEAD INJURY [None]
  - HYPERSENSITIVITY [None]
  - LOCAL SWELLING [None]
  - MEMORY IMPAIRMENT [None]
  - PERIORBITAL HAEMATOMA [None]
  - PHARMACEUTICAL PRODUCT COMPLAINT [None]
  - WEIGHT DECREASED [None]
  - WEIGHT INCREASED [None]
